FAERS Safety Report 4557153-4 (Version None)
Quarter: 2005Q1

REPORT INFORMATION
  Report Type: 
  Country: None (occurrence: None)
  Receive Date: 20050118
  Receipt Date: 20041230
  Transmission Date: 20050727
  Serious: Yes (Death)
  Sender: FDA-Public Use
  Company Number: 141066USA

PATIENT
  Age: 28 Year
  Sex: Male

DRUGS (9)
  1. ETOPOSIDE [Suspect]
     Indication: HODGKIN'S DISEASE NODULAR SCLEROSIS STAGE III
  2. CISPLATIN [Suspect]
     Indication: HODGKIN'S DISEASE NODULAR SCLEROSIS STAGE III
  3. MITOXANTRONE [Suspect]
     Indication: HODGKIN'S DISEASE NODULAR SCLEROSIS STAGE III
  4. IFOSFAMIDE [Suspect]
     Indication: HODGKIN'S DISEASE NODULAR SCLEROSIS STAGE III
  5. MESNA [Suspect]
     Indication: HODGKIN'S DISEASE NODULAR SCLEROSIS STAGE III
  6. CYCLOPHOSPHAMIDE [Suspect]
     Indication: HODGKIN'S DISEASE NODULAR SCLEROSIS STAGE III
  7. CYTARABINE [Suspect]
     Indication: HODGKIN'S DISEASE NODULAR SCLEROSIS STAGE III
  8. METHYLPREDNISOLONE [Suspect]
     Indication: HODGKIN'S DISEASE NODULAR SCLEROSIS STAGE UNSPECIFIED
  9. CARMUSTINE [Suspect]
     Indication: ALLOGENIC BONE MARROW TRANSPLANTATION THERAPY

REACTIONS (1)
  - IDIOPATHIC PNEUMONIA SYNDROME [None]
